FAERS Safety Report 18635993 (Version 1)
Quarter: 2020Q4

REPORT INFORMATION
  Report Type: Spontaneous
  Country: BR (occurrence: BR)
  Receive Date: 20201218
  Receipt Date: 20201218
  Transmission Date: 20210114
  Serious: Yes (Other)
  Sender: FDA-Public Use
  Company Number: BR-TAKEDA-2020TUS055808

PATIENT
  Sex: Female

DRUGS (2)
  1. MESACOL [MESALAZINE] [Suspect]
     Active Substance: MESALAMINE
     Indication: COLITIS
     Dosage: 500 MILLIGRAM
     Route: 065
     Dates: start: 202007
  2. MESACOL MMX [Suspect]
     Active Substance: MESALAMINE
     Indication: PRODUCT USED FOR UNKNOWN INDICATION
     Dosage: 1200 MILLIGRAM
     Route: 048

REACTIONS (3)
  - Haemorrhage [Unknown]
  - Intentional product use issue [Unknown]
  - Product storage error [Unknown]
